FAERS Safety Report 11440873 (Version 1)
Quarter: 2015Q3

REPORT INFORMATION
  Report Type: Spontaneous
  Country: US (occurrence: US)
  Receive Date: 20150821
  Receipt Date: 20150821
  Transmission Date: 20151125
  Serious: No
  Sender: FDA-Public Use
  Company Number: US-ELI_LILLY_AND_COMPANY-US200710007158

PATIENT
  Age: 38 Year
  Sex: Female

DRUGS (5)
  1. SUBOXONE [Concomitant]
     Active Substance: BUPRENORPHINE HYDROCHLORIDE\NALOXONE HYDROCHLORIDE
  2. ADVIL [Concomitant]
     Active Substance: IBUPROFEN
  3. CYMBALTA [Suspect]
     Active Substance: DULOXETINE HYDROCHLORIDE
     Dosage: UNK MG, UNK
  4. CLONIDINE. [Concomitant]
     Active Substance: CLONIDINE
     Indication: AGITATION
  5. CYMBALTA [Suspect]
     Active Substance: DULOXETINE HYDROCHLORIDE
     Indication: DEPRESSION
     Dosage: 30 MG, UNK
     Dates: start: 20071026

REACTIONS (3)
  - Panic reaction [Recovering/Resolving]
  - Headache [Recovering/Resolving]
  - Tachyphrenia [Recovering/Resolving]

NARRATIVE: CASE EVENT DATE: 20071027
